FAERS Safety Report 6313680-0 (Version None)
Quarter: 2009Q3

REPORT INFORMATION
  Report Type: 
  Country: None (occurrence: None)
  Receive Date: 20090818
  Receipt Date: 20090810
  Transmission Date: 20100115
  Serious: Yes (Hospitalization)
  Sender: FDA-Public Use
  Company Number: IT-VALEANT-2009VX001432

PATIENT
  Age: 59 Year
  Sex: Male

DRUGS (4)
  1. MESTINON [Suspect]
     Indication: MYASTHENIA GRAVIS
     Route: 048
     Dates: start: 20090624, end: 20090708
  2. MESTINON [Suspect]
     Route: 048
     Dates: start: 20090101
  3. SIMVASTATIN [Suspect]
     Route: 048
     Dates: start: 20000101, end: 20090708
  4. SIMVASTATIN [Suspect]
     Route: 048
     Dates: start: 20090101

REACTIONS (3)
  - ALANINE AMINOTRANSFERASE INCREASED [None]
  - ASPARTATE AMINOTRANSFERASE INCREASED [None]
  - HYPERTRANSAMINASAEMIA [None]
